FAERS Safety Report 8089000-0 (Version None)
Quarter: 2012Q1

REPORT INFORMATION
  Report Type: 
  Country: None (occurrence: None)
  Receive Date: 20120128
  Receipt Date: 20110824
  Transmission Date: 20120608
  Serious: No
  Sender: FDA-Public Use
  Company Number: PR-ABBOTT-11P-131-0848925-00

PATIENT
  Sex: Female
  Weight: 59.02 kg

DRUGS (4)
  1. ZOCOR [Concomitant]
     Indication: BLOOD CHOLESTEROL INCREASED
     Route: 048
  2. HUMIRA [Suspect]
     Indication: PSORIATIC ARTHROPATHY
     Route: 058
     Dates: start: 20100101, end: 20110801
  3. VASOTEC [Concomitant]
     Indication: HYPERTENSION
     Route: 048
  4. PLAVIX [Concomitant]
     Indication: PRODUCT USED FOR UNKNOWN INDICATION
     Route: 048

REACTIONS (14)
  - MUSCLE SPASMS [None]
  - GAIT DISTURBANCE [None]
  - WALKING AID USER [None]
  - DECREASED APPETITE [None]
  - MOVEMENT DISORDER [None]
  - WEIGHT DECREASED [None]
  - HEMIPARESIS [None]
  - INFLUENZA [None]
  - DRUG INEFFECTIVE [None]
  - MASS [None]
  - VISUAL IMPAIRMENT [None]
  - PAIN [None]
  - BALANCE DISORDER [None]
  - SENSORY LOSS [None]
